FAERS Safety Report 9536560 (Version 2)
Quarter: 2013Q4

REPORT INFORMATION
  Report Type: Spontaneous
  Country: DE (occurrence: DE)
  Receive Date: 20130919
  Receipt Date: 20131122
  Transmission Date: 20140711
  Serious: Yes (Other)
  Sender: FDA-Public Use
  Company Number: DE-JNJFOC-20130907866

PATIENT
  Age: 5 Year
  Sex: Male

DRUGS (1)
  1. NIZORAL (KETOCONAZOLE) [Suspect]
     Indication: SKIN INFECTION
     Route: 061
     Dates: start: 200610

REACTIONS (2)
  - Grand mal convulsion [Not Recovered/Not Resolved]
  - General physical health deterioration [Unknown]
